FAERS Safety Report 17073637 (Version 1)
Quarter: 2019Q4

REPORT INFORMATION
  Report Type: Report from Study
  Country: GR (occurrence: GR)
  Receive Date: 20191126
  Receipt Date: 20191126
  Transmission Date: 20200122
  Serious: Yes (Hospitalization, Other)
  Sender: FDA-Public Use
  Company Number: GR-ACTELION-A-CH2019-197319

PATIENT
  Age: 50 Year
  Sex: Male
  Weight: 89 kg

DRUGS (9)
  1. AMBRISENTAN [Concomitant]
     Active Substance: AMBRISENTAN
     Indication: PULMONARY ARTERIAL HYPERTENSION
     Dosage: 5 UNK, QD
     Route: 048
     Dates: start: 20180810
  2. METHYLPREDISOLONE [Concomitant]
     Active Substance: METHYLPREDNISOLONE
     Indication: MIXED CONNECTIVE TISSUE DISEASE
     Dosage: UNK
     Route: 048
     Dates: start: 201907
  3. AZATHIOPRINE. [Concomitant]
     Active Substance: AZATHIOPRINE
     Indication: MIXED CONNECTIVE TISSUE DISEASE
     Dosage: UNK
     Route: 048
     Dates: start: 201907, end: 20191018
  4. UPTRAVI [Suspect]
     Active Substance: SELEXIPAG
     Indication: PULMONARY ARTERIAL HYPERTENSION
     Dosage: 1600 MCG, QD
     Route: 048
     Dates: start: 20190617
  5. UPTRAVI [Suspect]
     Active Substance: SELEXIPAG
     Dosage: 400 MCG, QD
     Route: 048
     Dates: start: 20190507, end: 20190517
  6. UPTRAVI [Suspect]
     Active Substance: SELEXIPAG
     Dosage: 800 MCG, QD
     Route: 048
     Dates: start: 20190517, end: 20190527
  7. UPTRAVI [Suspect]
     Active Substance: SELEXIPAG
     Dosage: UNK
     Route: 048
     Dates: start: 20190220
  8. UPTRAVI [Suspect]
     Active Substance: SELEXIPAG
     Dosage: 1200 MCG, QD
     Route: 048
     Dates: start: 20190607, end: 20190617
  9. ADCIRCA [Concomitant]
     Active Substance: TADALAFIL
     Indication: PULMONARY ARTERIAL HYPERTENSION
     Dosage: 40 UNK, QD
     Route: 048
     Dates: start: 20190220

REACTIONS (6)
  - White blood cell count decreased [Unknown]
  - Haematocrit [Recovered/Resolved]
  - Bone marrow failure [Unknown]
  - Transfusion [Recovered/Resolved]
  - Anaemia [Recovered/Resolved]
  - Haemoglobin [Recovered/Resolved]

NARRATIVE: CASE EVENT DATE: 20191015
